FAERS Safety Report 9700637 (Version 1)
Quarter: 2013Q4

REPORT INFORMATION
  Report Type: Spontaneous
  Country: US (occurrence: None)
  Receive Date: 20131120
  Receipt Date: 20131120
  Transmission Date: 20140711
  Serious: Yes (Hospitalization)
  Sender: FDA-Public Use
  Company Number: None

PATIENT
  Age: 63 Year
  Sex: Female

DRUGS (1)
  1. LISINOPRIL [Suspect]

REACTIONS (5)
  - Metabolic acidosis [None]
  - Hyperkalaemia [None]
  - Renal tubular acidosis [None]
  - Renal failure acute [None]
  - Hypotension [None]
